FAERS Safety Report 7648953-2 (Version None)
Quarter: 2011Q3

REPORT INFORMATION
  Report Type: 
  Country: None (occurrence: None)
  Receive Date: 20110802
  Receipt Date: 20110721
  Transmission Date: 20111222
  Serious: Yes (Other)
  Sender: FDA-Public Use
  Company Number: AR-AMGEN-ARGSP2011035218

PATIENT
  Age: 35 Year
  Sex: Female
  Weight: 57 kg

DRUGS (2)
  1. METHOTREXATE [Suspect]
     Indication: PSORIASIS
     Dosage: HALF A PILL A DAY
     Route: 048
     Dates: start: 20100601, end: 20100801
  2. ENBREL [Suspect]
     Indication: PSORIASIS
     Dosage: 50 MG, WEEKLY
     Route: 058
     Dates: start: 20081001, end: 20101201

REACTIONS (3)
  - DRUG INEFFECTIVE [None]
  - ABORTION SPONTANEOUS [None]
  - PSORIASIS [None]
